APPROVED DRUG PRODUCT: OLANZAPINE
Active Ingredient: OLANZAPINE
Strength: 15MG
Dosage Form/Route: TABLET;ORAL
Application: A206238 | Product #005
Applicant: SUNSHINE LAKE PHARMA CO LTD
Approved: Nov 19, 2018 | RLD: No | RS: No | Type: DISCN